FAERS Safety Report 5277570-7 (Version None)
Quarter: 2007Q1

REPORT INFORMATION
  Report Type: 
  Country: None (occurrence: None)
  Receive Date: 20070327
  Receipt Date: 20070317
  Transmission Date: 20070707
  Serious: Yes (Death, Hospitalization, Other)
  Sender: FDA-Public Use
  Company Number: US-SHR-US-2007-004926

PATIENT
  Age: 62 Year
  Sex: Male

DRUGS (15)
  1. MAGNEVIST [Suspect]
     Dosage: 20 ML, 1 DOSE
     Route: 042
     Dates: start: 20050317, end: 20050317
  2. EPOGEN [Concomitant]
  3. INSULIN [Concomitant]
  4. METOPROLOL SUCCINATE [Concomitant]
     Indication: HYPERTENSION
  5. SIMVASTATIN [Concomitant]
  6. NEPHRO-VITE RX [Concomitant]
     Indication: VITAMIN SUPPLEMENTATION
  7. DEPAKOTE [Concomitant]
  8. ZINC [Concomitant]
     Indication: SUPPLEMENTATION THERAPY
  9. ASCORBIC ACID [Concomitant]
     Indication: VITAMIN SUPPLEMENTATION
  10. SILDENAFIL CITRATE [Concomitant]
     Indication: PULMONARY HYPERTENSION
  11. THEO-DUR [Concomitant]
     Indication: CHRONIC OBSTRUCTIVE PULMONARY DISEASE
  12. NORVASC [Concomitant]
     Indication: HYPERTENSION
  13. COUMADIN [Concomitant]
     Indication: PULMONARY HYPERTENSION
  14. AMARYL [Concomitant]
  15. MIRALAX [Concomitant]
     Indication: CONSTIPATION

REACTIONS (3)
  - NEPHROGENIC FIBROSING DERMOPATHY [None]
  - PULMONARY FIBROSIS [None]
  - RESPIRATORY FAILURE [None]
